FAERS Safety Report 24014823 (Version 1)
Quarter: 2024Q2

REPORT INFORMATION
  Report Type: Spontaneous
  Country: KR (occurrence: KR)
  Receive Date: 20240626
  Receipt Date: 20240626
  Transmission Date: 20240716
  Serious: Yes (Other)
  Sender: FDA-Public Use
  Company Number: KR-DSJP-DSJ-2024-127819

PATIENT
  Age: 68 Year
  Sex: Male

DRUGS (1)
  1. TRASTUZUMAB DERUXTECAN [Suspect]
     Active Substance: TRASTUZUMAB DERUXTECAN
     Indication: Lung neoplasm malignant
     Dosage: 1 VIAL (100 MG), QID
     Route: 042
     Dates: start: 20240522, end: 20240522

REACTIONS (3)
  - Inappropriate schedule of product administration [Recovered/Resolved with Sequelae]
  - Hepatic enzyme increased [Recovered/Resolved with Sequelae]
  - Toxicity to various agents [Recovered/Resolved with Sequelae]

NARRATIVE: CASE EVENT DATE: 20240601
